FAERS Safety Report 6932134-1 (Version None)
Quarter: 2010Q3

REPORT INFORMATION
  Report Type: 
  Country: None (occurrence: None)
  Receive Date: 20100819
  Receipt Date: 20100811
  Transmission Date: 20110219
  Serious: Yes (Death)
  Sender: FDA-Public Use
  Company Number: A0876546A

PATIENT
  Sex: Male

DRUGS (3)
  1. SERETIDE [Suspect]
     Indication: PRODUCT USED FOR UNKNOWN INDICATION
     Route: 055
  2. HYDROCHLOROTHIAZIDE [Concomitant]
     Route: 048
  3. SIMVASTATIN [Concomitant]
     Route: 065

REACTIONS (1)
  - DEATH [None]
